FAERS Safety Report 8614042-3 (Version None)
Quarter: 2012Q3

REPORT INFORMATION
  Report Type: 
  Country: None (occurrence: None)
  Receive Date: 20120823
  Receipt Date: 20120810
  Transmission Date: 20120928
  Serious: Yes (Other)
  Sender: FDA-Public Use
  Company Number: JP-MERCK-1208JPN006179

PATIENT

DRUGS (2)
  1. TURMERIC [Concomitant]
     Dosage: UNK
     Route: 048
  2. PROPECIA [Suspect]
     Indication: ANDROGENETIC ALOPECIA
     Dosage: 1 MG, QD
     Route: 048
     Dates: end: 20120723

REACTIONS (2)
  - LIVER DISORDER [None]
  - WEIGHT DECREASED [None]
